FAERS Safety Report 7616776-6 (Version None)
Quarter: 2011Q3

REPORT INFORMATION
  Report Type: 
  Country: None (occurrence: None)
  Receive Date: 20110718
  Receipt Date: 20110708
  Transmission Date: 20111222
  Serious: Yes (Hospitalization)
  Sender: FDA-Public Use
  Company Number: US-BIOGENIDEC-2011BI023252

PATIENT
  Age: 59 Year
  Sex: Female

DRUGS (2)
  1. AVONEX [Suspect]
     Route: 030
     Dates: start: 20030101
  2. AVONEX [Suspect]
     Indication: MULTIPLE SCLEROSIS
     Route: 030
     Dates: start: 20010101, end: 20030101

REACTIONS (7)
  - FACIAL BONES FRACTURE [None]
  - POST PROCEDURAL INFECTION [None]
  - FALL [None]
  - JAW FRACTURE [None]
  - MULTIPLE SCLEROSIS RELAPSE [None]
  - PNEUMONIA PNEUMOCOCCAL [None]
  - PARAESTHESIA [None]
